FAERS Safety Report 18516414 (Version 2)
Quarter: 2020Q4

REPORT INFORMATION
  Report Type: Spontaneous
  Country: US (occurrence: US)
  Receive Date: 20201118
  Receipt Date: 20201216
  Transmission Date: 20210114
  Serious: No
  Sender: FDA-Public Use
  Company Number: US-PFIZER INC-2020449426

PATIENT
  Age: 18 Year
  Sex: Male
  Weight: 58.97 kg

DRUGS (1)
  1. GENOTROPIN [Suspect]
     Active Substance: SOMATROPIN
     Indication: GROWTH HORMONE DEFICIENCY
     Dosage: 2 MG, 1X/DAY (2 MG, ONCE A NIGHT)
     Dates: start: 201703

REACTIONS (3)
  - Drug dose omission by device [Unknown]
  - Expired device used [Unknown]
  - Device information output issue [Unknown]

NARRATIVE: CASE EVENT DATE: 2020
